FAERS Safety Report 4689768-7 (Version None)
Quarter: 2005Q2

REPORT INFORMATION
  Report Type: 
  Country: None (occurrence: None)
  Receive Date: 20050608
  Receipt Date: 20050405
  Transmission Date: 20051028
  Serious: No
  Sender: FDA-Public Use
  Company Number: 2005-BP-05628BP

PATIENT
  Sex: Male

DRUGS (16)
  1. SPIRIVA [Suspect]
     Indication: DYSPNOEA
     Dosage: 18 MCG (18 MCG, QD), IH
     Route: 055
     Dates: start: 20050308
  2. SPIRIVA [Suspect]
  3. LOVASTATIN [Concomitant]
  4. CAPOTEN [Concomitant]
  5. HYDROCHLOROTHIAZIDE [Concomitant]
  6. NORVASC [Concomitant]
  7. IMDUR [Concomitant]
  8. TENORMIN [Concomitant]
  9. GLYBURIDE [Concomitant]
  10. GLUCOPHAGE [Concomitant]
  11. AVANDIA [Concomitant]
  12. VITAMIN E [Concomitant]
  13. ACETYLSALICYLIC ACID SRT [Concomitant]
  14. ALBUTEROL [Concomitant]
  15. ADVAIR(SEREDTIDE MITE) [Concomitant]
  16. DIABETA [Concomitant]

REACTIONS (1)
  - DRUG INEFFECTIVE [None]
